FAERS Safety Report 23797581 (Version 1)
Quarter: 2024Q2

REPORT INFORMATION
  Report Type: Spontaneous
  Country: US (occurrence: None)
  Receive Date: 20240430
  Receipt Date: 20240430
  Transmission Date: 20240716
  Serious: Yes (Other)
  Sender: FDA-Public Use
  Company Number: 2024A100588

PATIENT
  Age: 73 Year
  Sex: Male
  Weight: 63 kg

DRUGS (12)
  1. OLAPARIB [Suspect]
     Active Substance: OLAPARIB
     Indication: Adenocarcinoma
     Route: 048
     Dates: start: 20230928, end: 20231023
  2. OLAPARIB [Suspect]
     Active Substance: OLAPARIB
     Indication: Adenocarcinoma
     Route: 048
     Dates: start: 20240202
  3. OLAPARIB [Suspect]
     Active Substance: OLAPARIB
     Indication: Adenocarcinoma
     Route: 048
     Dates: start: 20240216, end: 20240304
  4. LIPITOR [Concomitant]
     Active Substance: ATORVASTATIN CALCIUM
     Indication: Adenocarcinoma
     Dates: start: 20230825
  5. LISINOPRIL [Concomitant]
     Active Substance: LISINOPRIL
     Indication: Adenocarcinoma
     Dates: start: 20230825
  6. ACETAMINOPHEN [Concomitant]
     Active Substance: ACETAMINOPHEN
     Indication: Adenocarcinoma
     Dates: start: 20231013
  7. FLOMAX [Concomitant]
     Active Substance: TAMSULOSIN HYDROCHLORIDE
     Indication: Adenocarcinoma
     Dates: start: 20231013
  8. TEMOVATE [Concomitant]
     Active Substance: CLOBETASOL PROPIONATE
     Indication: Adenocarcinoma
     Dates: start: 20231110
  9. OXYCODONE [Concomitant]
     Active Substance: OXYCODONE\OXYCODONE HYDROCHLORIDE
     Indication: Adenocarcinoma
     Dates: start: 20240119
  10. KENALOG [Concomitant]
     Active Substance: TRIAMCINOLONE ACETONIDE
     Indication: Adenocarcinoma
     Dates: start: 20240119
  11. IBUPROFEN [Concomitant]
     Active Substance: IBUPROFEN
     Indication: Adenocarcinoma
     Dates: start: 20240119
  12. PREDNISONE [Concomitant]
     Active Substance: PREDNISONE
     Indication: Adenocarcinoma
     Dates: start: 20240223

REACTIONS (5)
  - Anaemia [Unknown]
  - Deep vein thrombosis [Not Recovered/Not Resolved]
  - Product dose omission issue [Unknown]
  - Underdose [Unknown]
  - Overdose [Unknown]

NARRATIVE: CASE EVENT DATE: 20231124
